FAERS Safety Report 7228523-0 (Version None)
Quarter: 2011Q1

REPORT INFORMATION
  Report Type: 
  Country: None (occurrence: None)
  Receive Date: 20110117
  Receipt Date: 20110107
  Transmission Date: 20110831
  Serious: Yes (Other)
  Sender: FDA-Public Use
  Company Number: US-BIOGENIDEC-2010BI043828

PATIENT
  Age: 31 Year
  Sex: Female
  Weight: 70 kg

DRUGS (1)
  1. TYSABRI [Suspect]
     Indication: MULTIPLE SCLEROSIS
     Route: 042
     Dates: start: 20081001

REACTIONS (9)
  - BLADDER PAIN [None]
  - FEMALE STERILISATION [None]
  - URINARY TRACT INFECTION [None]
  - URINARY INCONTINENCE [None]
  - BASAL CELL CARCINOMA [None]
  - SINUSITIS [None]
  - MICTURITION URGENCY [None]
  - BENIGN NEOPLASM [None]
  - PANIC ATTACK [None]
